FAERS Safety Report 11407308 (Version 1)
Quarter: 2015Q3

REPORT INFORMATION
  Report Type: Spontaneous
  Country: US (occurrence: US)
  Receive Date: 20150821
  Receipt Date: 20150821
  Transmission Date: 20151125
  Serious: No
  Sender: FDA-Public Use
  Company Number: US-NOVOPROD-416596

PATIENT
  Sex: Male

DRUGS (1)
  1. VICTOZA [Suspect]
     Active Substance: LIRAGLUTIDE
     Indication: PRODUCT USED FOR UNKNOWN INDICATION
     Dosage: 1.8 MG, QD
     Route: 058

REACTIONS (5)
  - Feeling hot [Unknown]
  - Glycosylated haemoglobin increased [Recovering/Resolving]
  - Nausea [Not Recovered/Not Resolved]
  - Photosensitivity reaction [Unknown]
  - Injection site bruising [Unknown]

NARRATIVE: CASE EVENT DATE: 201404
